FAERS Safety Report 8987369 (Version 2)
Quarter: 2013Q1

REPORT INFORMATION
  Report Type: Spontaneous
  Country: US (occurrence: US)
  Receive Date: 20121226
  Receipt Date: 20130130
  Transmission Date: 20140127
  Serious: No
  Sender: FDA-Public Use
  Company Number: US-B.I. PHARMACEUTICALS,INC./RIDGEFIELD-2012-BP-00417BP

PATIENT
  Sex: Female

DRUGS (3)
  1. SPIRIVA HANDIHALER [Suspect]
     Indication: CHRONIC OBSTRUCTIVE PULMONARY DISEASE
     Dosage: 18 MCG
     Route: 055
     Dates: start: 201209
  2. SPIRIVA HANDIHALER [Suspect]
     Indication: EMPHYSEMA
  3. SPIRIVA HANDIHALER [Suspect]
     Indication: BRONCHITIS CHRONIC

REACTIONS (2)
  - Aphthous stomatitis [Not Recovered/Not Resolved]
  - Macular degeneration [Not Recovered/Not Resolved]
